FAERS Safety Report 16112488 (Version 1)
Quarter: 2019Q1

REPORT INFORMATION
  Report Type: Spontaneous
  Country: US (occurrence: US)
  Receive Date: 20190325
  Receipt Date: 20190325
  Transmission Date: 20190418
  Serious: No
  Sender: FDA-Public Use
  Company Number: US-PFIZER INC-2019119949

PATIENT
  Age: 64 Year
  Sex: Female
  Weight: 63.5 kg

DRUGS (3)
  1. XELJANZ [Suspect]
     Active Substance: TOFACITINIB CITRATE
     Indication: RHEUMATOID ARTHRITIS
     Dosage: 5 MG, 2X/DAY
     Route: 048
     Dates: start: 201812, end: 201901
  2. XELJANZ [Suspect]
     Active Substance: TOFACITINIB CITRATE
     Indication: POST-TRAUMATIC STRESS DISORDER
  3. XELJANZ [Suspect]
     Active Substance: TOFACITINIB CITRATE
     Indication: FIBROMYALGIA

REACTIONS (3)
  - Infection [Unknown]
  - Nasopharyngitis [Unknown]
  - Nausea [Unknown]

NARRATIVE: CASE EVENT DATE: 201812
